FAERS Safety Report 11706722 (Version 1)
Quarter: 2015Q4

REPORT INFORMATION
  Report Type: Spontaneous
  Country: US (occurrence: US)
  Receive Date: 20151106
  Receipt Date: 20151106
  Transmission Date: 20160304
  Serious: Yes (Other)
  Sender: FDA-Public Use
  Company Number: US-FRI-1000080775

PATIENT
  Sex: Female

DRUGS (1)
  1. ARMOUR THYROID [Suspect]
     Active Substance: THYROID, PORCINE\THYROID, UNSPECIFIED
     Dosage: 120 MG

REACTIONS (17)
  - Hypertension [Recovered/Resolved]
  - Menorrhagia [Recovered/Resolved]
  - Ear canal erythema [Recovered/Resolved]
  - Rheumatoid arthritis [Not Recovered/Not Resolved]
  - Pain in extremity [Not Recovered/Not Resolved]
  - Disturbance in attention [Recovered/Resolved]
  - Jaw disorder [Recovered/Resolved]
  - Arthralgia [Not Recovered/Not Resolved]
  - Head discomfort [Recovered/Resolved]
  - Dyspnoea [Recovered/Resolved]
  - Breast swelling [Recovered/Resolved]
  - Weight increased [Recovered/Resolved]
  - Nasal congestion [Recovered/Resolved]
  - Bowel movement irregularity [Recovered/Resolved]
  - Swelling [Recovered/Resolved]
  - Urticaria [Recovered/Resolved]
  - Pharyngeal disorder [Recovered/Resolved]

NARRATIVE: CASE EVENT DATE: 200712
